FAERS Safety Report 16457277 (Version 1)
Quarter: 2019Q2

REPORT INFORMATION
  Report Type: Spontaneous
  Country: US (occurrence: US)
  Receive Date: 20190620
  Receipt Date: 20190620
  Transmission Date: 20190711
  Serious: Yes (Hospitalization)
  Sender: FDA-Public Use
  Company Number: US-DOVA PHARMACEUTICALS INC.-DOV-000283

PATIENT
  Sex: Male

DRUGS (1)
  1. DOPTELET [Suspect]
     Active Substance: AVATROMBOPAG MALEATE
     Indication: OESOPHAGOGASTRODUODENOSCOPY
     Dosage: UNK
     Dates: start: 20190511, end: 20190514

REACTIONS (1)
  - Hepatic encephalopathy [Recovered/Resolved]
